FAERS Safety Report 23813097 (Version 1)
Quarter: 2024Q2

REPORT INFORMATION
  Report Type: Spontaneous
  Country: US (occurrence: US)
  Receive Date: 20240503
  Receipt Date: 20240503
  Transmission Date: 20240716
  Serious: No
  Sender: FDA-Public Use
  Company Number: US-AMNEAL PHARMACEUTICALS-2023-AMRX-03288

PATIENT
  Age: 0 Year
  Sex: Female
  Weight: 9.796 kg

DRUGS (4)
  1. VIGABATRIN [Suspect]
     Active Substance: VIGABATRIN
     Indication: Infantile spasms
     Dosage: 600 MG, TWICE DAILY
     Route: 048
  2. DEXTROSE\WATER [Concomitant]
     Active Substance: DEXTROSE\WATER
     Indication: Product used for unknown indication
     Dosage: UNK
     Route: 065
  3. FAMOTIDINE [Concomitant]
     Active Substance: FAMOTIDINE
     Indication: Product used for unknown indication
     Dosage: 40 MG/5 ML SUSP RECON
     Route: 065
  4. PREDNISONE [Concomitant]
     Active Substance: PREDNISONE
     Indication: Product used for unknown indication
     Dosage: 5 MG/5 ML SOLUTION
     Route: 065

REACTIONS (1)
  - Restlessness [Unknown]

NARRATIVE: CASE EVENT DATE: 20230913
